FAERS Safety Report 4657341-2 (Version None)
Quarter: 2005Q2

REPORT INFORMATION
  Report Type: 
  Country: None (occurrence: None)
  Receive Date: 20050408
  Receipt Date: 20041217
  Transmission Date: 20051028
  Serious: No
  Sender: FDA-Public Use
  Company Number: 235902K04USA

PATIENT
  Age: 67 Year
  Sex: Female

DRUGS (3)
  1. REBIF [Suspect]
     Indication: MULTIPLE SCLEROSIS
     Dosage: 44 MCG, 3 IN 1 WEEKS, SUBCUTANEOUS;  22 MCG, 3 IN 1 WEEKS, SUBCUTANEOUS
     Route: 058
     Dates: start: 20040810
  2. TYLENOL [Concomitant]
  3. ADVIL [Concomitant]

REACTIONS (8)
  - CHILLS [None]
  - HEADACHE [None]
  - HOT FLUSH [None]
  - INFLUENZA LIKE ILLNESS [None]
  - MUSCULOSKELETAL PAIN [None]
  - MYDRIASIS [None]
  - PALLOR [None]
  - PERIPHERAL COLDNESS [None]
